FAERS Safety Report 5421070-8 (Version None)
Quarter: 2007Q3

REPORT INFORMATION
  Report Type: 
  Country: None (occurrence: None)
  Receive Date: 20070821
  Receipt Date: 20070815
  Transmission Date: 20080115
  Serious: Yes (Disabling)
  Sender: FDA-Public Use
  Company Number: B0481611A

PATIENT
  Sex: Female

DRUGS (11)
  1. PAXIL [Suspect]
     Indication: DEPRESSION
     Route: 048
     Dates: start: 20070409, end: 20070518
  2. AMLODIPINE [Concomitant]
     Indication: HYPERTENSION
     Dosage: 5MG PER DAY
     Route: 048
  3. CHINESE MEDICINE [Concomitant]
     Route: 048
  4. CHINESE MEDICINE [Concomitant]
     Route: 048
     Dates: end: 20070523
  5. CLARITIN [Concomitant]
     Dosage: 1MG PER DAY
     Route: 048
  6. UNKNOWN DRUG [Concomitant]
     Indication: HEPATITIS C
     Dosage: 600MG PER DAY
     Route: 048
  7. KITAZEMIN [Concomitant]
     Dosage: 9MG PER DAY
     Route: 048
  8. ASPARA K [Concomitant]
     Dosage: 1800MG PER DAY
     Route: 048
  9. CHONDROITIN [Concomitant]
     Indication: BACK PAIN
     Route: 042
  10. UNKNOWN DRUG [Concomitant]
     Indication: BACK PAIN
     Route: 042
  11. UNKNOWN DRUG [Concomitant]
     Indication: NEUROPATHY PERIPHERAL
     Route: 042

REACTIONS (8)
  - COGNITIVE DISORDER [None]
  - COMPUTERISED TOMOGRAM NORMAL [None]
  - DEMENTIA [None]
  - DIZZINESS [None]
  - FALL [None]
  - HEAD BANGING [None]
  - MASKED FACIES [None]
  - PARKINSONISM [None]
